FAERS Safety Report 20351833 (Version 1)
Quarter: 2022Q1

REPORT INFORMATION
  Report Type: Spontaneous
  Country: US (occurrence: None)
  Receive Date: 20220118
  Receipt Date: 20220118
  Transmission Date: 20220423
  Serious: No
  Sender: FDA-Public Use
  Company Number: None

PATIENT
  Age: 62 Year
  Sex: Female

DRUGS (2)
  1. REMICADE [Suspect]
     Active Substance: INFLIXIMAB
     Route: 041
  2. REMICADE [Concomitant]
     Active Substance: INFLIXIMAB
     Dates: start: 20220117, end: 20220117

REACTIONS (6)
  - Infusion related reaction [None]
  - Flushing [None]
  - Throat irritation [None]
  - Lacrimation increased [None]
  - Chills [None]
  - Flank pain [None]

NARRATIVE: CASE EVENT DATE: 20220117
